FAERS Safety Report 4717153-8 (Version None)
Quarter: 2005Q3

REPORT INFORMATION
  Report Type: 
  Country: None (occurrence: None)
  Receive Date: 20050719
  Receipt Date: 20050712
  Transmission Date: 20060218
  Serious: Yes (Disabling)
  Sender: FDA-Public Use
  Company Number: GB-GLAXOSMITHKLINE-B0387499A

PATIENT
  Age: 28 Year
  Sex: Female

DRUGS (4)
  1. ONDANSETRON [Suspect]
     Indication: NAUSEA
     Dosage: 4MG PER DAY
     Route: 042
     Dates: start: 20050622, end: 20050622
  2. CYCLIZINE [Concomitant]
     Dosage: 50MG PER DAY
     Route: 042
     Dates: start: 20050622, end: 20050622
  3. ACETAMINOPHEN [Concomitant]
     Dosage: 1G PER DAY
     Route: 042
     Dates: start: 20050622, end: 20050622
  4. DIHYDROCODEINE [Concomitant]
     Dosage: 60MG PER DAY
     Route: 042
     Dates: start: 20050622, end: 20050622

REACTIONS (1)
  - DYSKINESIA [None]
